FAERS Safety Report 18550777 (Version 1)
Quarter: 2020Q4

REPORT INFORMATION
  Report Type: Spontaneous
  Country: US (occurrence: US)
  Receive Date: 20201126
  Receipt Date: 20201126
  Transmission Date: 20210114
  Serious: Yes (Other)
  Sender: FDA-Public Use
  Company Number: US-AMGEN-USASP2020187788

PATIENT
  Age: 62 Year
  Sex: Female

DRUGS (9)
  1. DOCETAXEL. [Concomitant]
     Active Substance: DOCETAXEL
     Indication: UTERINE LEIOMYOSARCOMA
     Dosage: 35 MILLIGRAM/SQ. METER
     Route: 065
  2. DOXORUBICIN [Concomitant]
     Active Substance: DOXORUBICIN
     Indication: UTERINE LEIOMYOSARCOMA
     Dosage: 15 MILLIGRAM/SQ. METER
     Route: 065
  3. PEGFILGRASTIM [Suspect]
     Active Substance: PEGFILGRASTIM
     Indication: PROPHYLAXIS
     Dosage: UNK, Q3WK
     Route: 065
  4. MESNA. [Concomitant]
     Active Substance: MESNA
     Indication: UTERINE LEIOMYOSARCOMA
     Dosage: 2500 MILLIGRAM/SQ. METER
     Route: 065
  5. PEMBROLIZUMAB. [Concomitant]
     Active Substance: PEMBROLIZUMAB
     Dosage: 200 MILLIGRAM, Q3WK
     Route: 042
     Dates: start: 201806
  6. GEMCITABINE. [Concomitant]
     Active Substance: GEMCITABINE
     Indication: UTERINE LEIOMYOSARCOMA
     Dosage: 900 MILLIGRAM/SQ. METER
     Route: 042
  7. IFOSFAMIDE. [Concomitant]
     Active Substance: IFOSFAMIDE
     Dosage: 2000 MILLIGRAM/SQ. METER
  8. XGEVA [Suspect]
     Active Substance: DENOSUMAB
     Indication: METASTASES TO SPINE
     Dosage: 120 MILLIGRAM, Q4WK
     Route: 065
  9. DACARBAZINE. [Concomitant]
     Active Substance: DACARBAZINE
     Dosage: 250 MILLIGRAM/SQ. METER, Q3WK

REACTIONS (5)
  - Hypothyroidism [Unknown]
  - Pleural effusion [Recovering/Resolving]
  - Fatigue [Unknown]
  - Drug ineffective [Unknown]
  - Dermatitis [Recovered/Resolved]
